FAERS Safety Report 12313208 (Version 1)
Quarter: 2016Q2

REPORT INFORMATION
  Report Type: Spontaneous
  Country: US (occurrence: US)
  Receive Date: 20160428
  Receipt Date: 20160428
  Transmission Date: 20160815
  Serious: No
  Sender: FDA-Public Use
  Company Number: US-NOVEN PHARMACEUTICALS, INC.-US2016000395

PATIENT

DRUGS (2)
  1. BRISDELLE [Suspect]
     Active Substance: PAROXETINE MESYLATE
     Indication: HOT FLUSH
     Dosage: 7.5 MG, UNKNOWN
     Route: 048
     Dates: start: 201601
  2. BRISDELLE [Suspect]
     Active Substance: PAROXETINE MESYLATE
     Indication: NIGHT SWEATS

REACTIONS (1)
  - Night sweats [Not Recovered/Not Resolved]

NARRATIVE: CASE EVENT DATE: 201601
